FAERS Safety Report 6554430-2 (Version None)
Quarter: 2010Q1

REPORT INFORMATION
  Report Type: 
  Country: None (occurrence: None)
  Receive Date: 20100127
  Receipt Date: 20100119
  Transmission Date: 20100710
  Serious: Yes (Death)
  Sender: FDA-Public Use
  Company Number: GXKR2008GB03840

PATIENT
  Age: 61 Year
  Sex: Male
  Weight: 74.5 kg

DRUGS (6)
  1. TOPIRAMATE [Suspect]
     Indication: CONVULSION
     Dosage: 25 MG, UNK
     Route: 048
     Dates: start: 20071001
  2. TOPIRAMATE [Suspect]
     Dosage: 50 MG, UNK
     Route: 048
  3. TEMOZOLOMIDE [Suspect]
     Indication: GLIOBLASTOMA MULTIFORME
     Dosage: 75 MG/M2, QD
     Route: 048
     Dates: start: 20071001, end: 20071109
  4. ALLOPURINOL [Concomitant]
     Indication: GOUT
     Dosage: 100 MG, UNK
     Route: 048
  5. DEXAMETHASONE [Concomitant]
     Indication: GLIOBLASTOMA
     Dosage: 6 MG, UNK
     Route: 048
     Dates: start: 20070901
  6. LANSOPRAZOLE [Concomitant]

REACTIONS (5)
  - BONE MARROW FAILURE [None]
  - FEBRILE NEUTROPENIA [None]
  - HAEMORRHAGE [None]
  - PANCYTOPENIA [None]
  - PETECHIAE [None]
